FAERS Safety Report 5926036-7 (Version None)
Quarter: 2008Q4

REPORT INFORMATION
  Report Type: 
  Country: None (occurrence: None)
  Receive Date: 20080924
  Receipt Date: 20080919
  Transmission Date: 20090506
  Serious: No
  Sender: FDA-Public Use
  Company Number: US-WYE-H05372308

PATIENT
  Sex: Male
  Weight: 70 kg

DRUGS (1)
  1. TORISEL [Suspect]

REACTIONS (3)
  - PRE-EXISTING CONDITION IMPROVED [None]
  - SKIN HYPERPIGMENTATION [None]
  - THERAPEUTIC RESPONSE UNEXPECTED [None]
